FAERS Safety Report 7148029-7 (Version None)
Quarter: 2010Q4

REPORT INFORMATION
  Report Type: 
  Country: None (occurrence: None)
  Receive Date: 20101209
  Receipt Date: 20101202
  Transmission Date: 20110411
  Serious: Yes (Hospitalization)
  Sender: FDA-Public Use
  Company Number: FR-JNJFOC-20091000144

PATIENT
  Sex: Female

DRUGS (8)
  1. DURAGESIC-100 [Suspect]
     Indication: PAIN
     Route: 062
     Dates: start: 20071101, end: 20080107
  2. ACTISKENAN [Suspect]
     Indication: HERPES ZOSTER
     Route: 048
     Dates: start: 20071101, end: 20080107
  3. LAMALINE [Suspect]
     Indication: PAIN
     Route: 048
     Dates: start: 20071101, end: 20080107
  4. NOVONORM [Concomitant]
     Route: 065
  5. LASIX [Concomitant]
     Route: 065
  6. IRON [Concomitant]
     Route: 065
  7. NEBIVOLOL HCL [Concomitant]
     Route: 065
  8. REMINYL [Concomitant]
     Route: 065

REACTIONS (2)
  - ABNORMAL BEHAVIOUR [None]
  - DISORIENTATION [None]
